FAERS Safety Report 7154253 (Version 3)
Quarter: 2013Q4

REPORT INFORMATION
  Report Type: Spontaneous
  Country: None (occurrence: JP)
  Receive Date: 20091021
  Receipt Date: 20131028
  Transmission Date: 20140711
  Serious: Yes (Hospitalization)
  Sender: FDA-Public Use
  Company Number: JP-EISAI INC-E2090-00860-SPO-JP

PATIENT
  Age: 10 Year
  Sex: Female
  Weight: 28.7 kg

DRUGS (7)
  1. EXCEGRAN [Suspect]
     Indication: EPILEPSY
     Route: 048
     Dates: start: 19991109, end: 20090107
  2. EXCEGRAN [Suspect]
     Indication: EPILEPSY
  3. EXCEGRAN [Suspect]
     Indication: EPILEPSY
  4. CLONAZEPAM [Suspect]
     Indication: EPILEPSY
     Dosage: UNKNOWN
     Route: 048
     Dates: start: 1999
  5. HYSERENIN [Concomitant]
     Indication: EPILEPSY
     Dosage: 100 MG/DAY
     Dates: start: 19990205
  6. MYSTAN [Concomitant]
     Indication: EPILEPSY
     Dosage: 3 MG/DAY
     Dates: start: 20051209
  7. PHENOBAL [Concomitant]
     Indication: EPILEPSY
     Dosage: 30 MG/DAY
     Dates: start: 19981222

REACTIONS (7)
  - Calculus urinary [Recovered/Resolved]
  - Hydronephrosis [Recovered/Resolved]
  - Renal impairment [Recovered/Resolved]
  - Gastrointestinal haemorrhage [Unknown]
  - Urine output decreased [Unknown]
  - Pyrexia [Recovered/Resolved]
  - Diarrhoea [Recovered/Resolved]
